FAERS Safety Report 4824675-8 (Version None)
Quarter: 2005Q4

REPORT INFORMATION
  Report Type: 
  Country: None (occurrence: None)
  Receive Date: 20051012
  Receipt Date: 20050804
  Transmission Date: 20060501
  Serious: No
  Sender: FDA-Public Use
  Company Number: 2005S1000171

PATIENT
  Age: 82 Year

DRUGS (3)
  1. CUBICIN [Suspect]
     Indication: STAPHYLOCOCCAL BACTERAEMIA
     Dosage: 400 MG; Q24H, IV
     Route: 042
     Dates: start: 20050101, end: 20050803
  2. MULTIPLE CARDIAC MEDICATIONS [Concomitant]
  3. RIFAMPIN [Concomitant]

REACTIONS (2)
  - BLOOD AMYLASE INCREASED [None]
  - LIPASE INCREASED [None]
